FAERS Safety Report 13175190 (Version 1)
Quarter: 2017Q1

REPORT INFORMATION
  Report Type: Spontaneous
  Country: US (occurrence: US)
  Receive Date: 20170131
  Receipt Date: 20170131
  Transmission Date: 20170428
  Serious: Yes (Hospitalization)
  Sender: FDA-Public Use
  Company Number: None

PATIENT
  Age: 26 Year
  Sex: Female
  Weight: 56.41 kg

DRUGS (2)
  1. PALBOCICLIB (PD0332991) [Suspect]
     Active Substance: PALBOCICLIB
     Indication: SQUAMOUS CELL CARCINOMA OF HEAD AND NECK
     Dosage: FREQUENCY - QD DAYS 1-21
     Route: 048
     Dates: start: 20160901, end: 20161221
  2. CETUXIMAB. [Suspect]
     Active Substance: CETUXIMAB
     Indication: SQUAMOUS CELL CARCINOMA OF HEAD AND NECK
     Dosage: DOSE - 250 MG/M2
     Route: 042
     Dates: start: 20160901, end: 20161220

REACTIONS (16)
  - Blood pressure increased [None]
  - Pulmonary embolism [None]
  - Hypercalcaemia [None]
  - Disease progression [None]
  - Amylase abnormal [None]
  - Musculoskeletal pain [None]
  - Asthenia [None]
  - Hypoxia [None]
  - Fatigue [None]
  - Abdominal pain [None]
  - Contusion [None]
  - Heart rate increased [None]
  - Back pain [None]
  - Condition aggravated [None]
  - Haemoglobin decreased [None]
  - Tachycardia [None]

NARRATIVE: CASE EVENT DATE: 20170118
